FAERS Safety Report 18339915 (Version 1)
Quarter: 2020Q4

REPORT INFORMATION
  Report Type: Spontaneous
  Country: US (occurrence: US)
  Receive Date: 20201002
  Receipt Date: 20201002
  Transmission Date: 20210113
  Serious: No
  Sender: FDA-Public Use
  Company Number: US-SAREPTA THERAPEUTICS INC.-SRP2019-000556

PATIENT
  Age: 13 Year
  Sex: Male

DRUGS (6)
  1. EMFLAZA [Concomitant]
     Active Substance: DEFLAZACORT
     Indication: DUCHENNE MUSCULAR DYSTROPHY
     Dosage: 30 MG, UNK
     Route: 065
  2. COENZYME Q10 [Concomitant]
     Active Substance: DIETARY SUPPLEMENT\UBIDECARENONE
     Indication: MUSCULAR WEAKNESS
     Dosage: 300 MG, UNK
     Route: 065
  3. EMFLAZA [Concomitant]
     Active Substance: DEFLAZACORT
     Indication: MUSCLE ATROPHY
  4. EXONDYS 51 [Suspect]
     Active Substance: ETEPLIRSEN
     Indication: DUCHENNE MUSCULAR DYSTROPHY
     Dosage: 1300 MG, WEEKLY
     Route: 042
  5. LISINOPRIL. [Concomitant]
     Active Substance: LISINOPRIL
     Indication: CARDIOVASCULAR EVENT PROPHYLAXIS
     Dosage: 10 MG, UNK
     Route: 065
  6. EPLERENONE. [Concomitant]
     Active Substance: EPLERENONE
     Indication: CARDIOVASCULAR EVENT PROPHYLAXIS
     Dosage: 75 MG, UNK
     Route: 065

REACTIONS (1)
  - Device issue [Recovered/Resolved]

NARRATIVE: CASE EVENT DATE: 2019
